FAERS Safety Report 7865854-5 (Version None)
Quarter: 2011Q4

REPORT INFORMATION
  Report Type: 
  Country: None (occurrence: None)
  Receive Date: 20111028
  Receipt Date: 20110309
  Transmission Date: 20120403
  Serious: No
  Sender: FDA-Public Use
  Company Number: US-GLAXOSMITHKLINE-A0917384A

PATIENT
  Age: 75 Year
  Sex: Female

DRUGS (8)
  1. LORAZEPAM [Concomitant]
  2. ADVAIR DISKUS 100/50 [Suspect]
     Indication: EMPHYSEMA
     Dosage: 1PUFF TWICE PER DAY
     Route: 055
     Dates: start: 20080101
  3. KLOR-CON [Concomitant]
  4. DICYCLOMINE [Concomitant]
  5. HYOSCYAMINE [Concomitant]
  6. PROTONIX [Concomitant]
  7. CYMBALTA [Concomitant]
  8. AMLODIPINE [Concomitant]

REACTIONS (7)
  - NON-CARDIAC CHEST PAIN [None]
  - DRUG INTOLERANCE [None]
  - PRODUCT QUALITY ISSUE [None]
  - DYSGEUSIA [None]
  - FEELING ABNORMAL [None]
  - OROPHARYNGEAL PAIN [None]
  - RESPIRATORY TRACT IRRITATION [None]
